FAERS Safety Report 15806032 (Version 1)
Quarter: 2019Q1

REPORT INFORMATION
  Report Type: Spontaneous
  Country: US (occurrence: US)
  Receive Date: 20190110
  Receipt Date: 20190110
  Transmission Date: 20190417
  Serious: No
  Sender: FDA-Public Use
  Company Number: US-SHIRE-US201900733

PATIENT
  Sex: Female

DRUGS (2)
  1. XIIDRA [Suspect]
     Active Substance: LIFITEGRAST
     Indication: OFF LABEL USE
  2. XIIDRA [Suspect]
     Active Substance: LIFITEGRAST
     Indication: DRY EYE
     Route: 047

REACTIONS (5)
  - Instillation site reaction [Recovered/Resolved]
  - Off label use [Unknown]
  - Erythema of eyelid [Unknown]
  - Vision blurred [Recovered/Resolved]
  - Instillation site irritation [Unknown]
